FAERS Safety Report 25506722 (Version 1)
Quarter: 2025Q3

REPORT INFORMATION
  Report Type: Spontaneous
  Country: EU (occurrence: EU)
  Receive Date: 20250702
  Receipt Date: 20250702
  Transmission Date: 20251020
  Serious: Yes (Hospitalization)
  Sender: SHIONOGI
  Company Number: EU-AFSSAPS-PV2025000452

PATIENT
  Sex: Male

DRUGS (3)
  1. CEFIDEROCOL [Suspect]
     Active Substance: CEFIDEROCOL
     Indication: Cystic fibrosis
     Route: 042
     Dates: start: 20241116, end: 20241201
  2. CEFIDEROCOL [Suspect]
     Active Substance: CEFIDEROCOL
     Route: 042
     Dates: start: 20250130, end: 20250215
  3. CEFIDEROCOL [Suspect]
     Active Substance: CEFIDEROCOL
     Route: 042
     Dates: start: 20250506, end: 20250519

REACTIONS (1)
  - Autoimmune haemolytic anaemia [Recovered/Resolved]

NARRATIVE: CASE EVENT DATE: 20250518
